FAERS Safety Report 15208852 (Version 2)
Quarter: 2018Q3

REPORT INFORMATION
  Report Type: Spontaneous
  Country: US (occurrence: US)
  Receive Date: 20180727
  Receipt Date: 20180827
  Transmission Date: 20181010
  Serious: No
  Sender: FDA-Public Use
  Company Number: US-SHIRE-US201828896

PATIENT
  Age: 99 Year
  Sex: Female
  Weight: 56.69 kg

DRUGS (8)
  1. XIIDRA [Suspect]
     Active Substance: LIFITEGRAST
     Dosage: 1 GTT, 2X/DAY:BID
     Route: 047
     Dates: start: 20180620, end: 201807
  2. REFRESH [Concomitant]
     Active Substance: UNSPECIFIED INGREDIENT
     Indication: PRODUCT USED FOR UNKNOWN INDICATION
  3. RETAIN [Concomitant]
     Indication: PRODUCT USED FOR UNKNOWN INDICATION
  4. SYNTHROID [Concomitant]
     Active Substance: LEVOTHYROXINE SODIUM
  5. LACTULOSE. [Concomitant]
     Active Substance: LACTULOSE
  6. XIIDRA [Suspect]
     Active Substance: LIFITEGRAST
     Indication: DRY EYE
     Dosage: 1 GTT, 2X/DAY:BID
     Route: 047
     Dates: start: 20180612
  7. MULTIVITAMIN [Concomitant]
     Active Substance: VITAMINS
     Indication: PRODUCT USED FOR UNKNOWN INDICATION
  8. TEMAZEPAM. [Concomitant]
     Active Substance: TEMAZEPAM

REACTIONS (5)
  - Dysphonia [Recovering/Resolving]
  - Instillation site lacrimation [Recovering/Resolving]
  - Instillation site reaction [Unknown]
  - Rhinorrhoea [Recovering/Resolving]
  - Madarosis [Unknown]

NARRATIVE: CASE EVENT DATE: 201806
